FAERS Safety Report 9557231 (Version 1)
Quarter: 2013Q3

REPORT INFORMATION
  Report Type: Spontaneous
  Country: US (occurrence: None)
  Receive Date: 20130724
  Receipt Date: 20130724
  Transmission Date: 20140515
  Serious: Yes (Other)
  Sender: FDA-Public Use
  Company Number: PHEH2013US007640

PATIENT
  Age: 51 Year
  Sex: Female

DRUGS (9)
  1. GILENYA (FINGOLIMOD) CAPSULE, 0.5MG [Suspect]
     Route: 048
     Dates: start: 20130319
  2. TEGRETOL (CARBAMAZEPINE) UNKNOWN [Concomitant]
  3. GABAPENTIN [Concomitant]
  4. LAMICTAL (LAMOTRIGINE) [Concomitant]
  5. PRILOSEC [Concomitant]
  6. VITAMIN B12 (CYANOCOBALAMIN) [Concomitant]
  7. CALCIUM + VIT D (CALCIUM CARBONATE, VITAMIN D NOS) [Concomitant]
  8. TYLENOL (PARACETAMOL) [Concomitant]
  9. NUVIGIL (ARMODAFINIL) [Concomitant]

REACTIONS (1)
  - Heart rate decreased [None]
